FAERS Safety Report 24955145 (Version 1)
Quarter: 2025Q1

REPORT INFORMATION
  Report Type: Spontaneous
  Country: US (occurrence: None)
  Receive Date: 20250210
  Receipt Date: 20250210
  Transmission Date: 20250408
  Serious: Yes (Hospitalization, Other)
  Sender: FDA-CTU
  Company Number: None

PATIENT
  Age: 4 Year
  Sex: Female
  Weight: 22.95 kg

DRUGS (4)
  1. FLUTICASONE PROPIONATE HFA [Suspect]
     Active Substance: FLUTICASONE PROPIONATE
     Indication: Pneumonia
     Dosage: OTHER STRENGTH : MCG;?OTHER QUANTITY : 2 PUFF(S);?FREQUENCY : DAILY;?
     Route: 055
     Dates: start: 20240618, end: 20250208
  2. FLUTICASONE PROPIONATE HFA [Suspect]
     Active Substance: FLUTICASONE PROPIONATE
     Indication: Asthma
  3. Centrizine [Concomitant]
  4. Smarty Pants Vitamins [Concomitant]

REACTIONS (2)
  - Pneumonia [None]
  - Economic problem [None]

NARRATIVE: CASE EVENT DATE: 20241206
